FAERS Safety Report 7813477-6 (Version None)
Quarter: 2011Q4

REPORT INFORMATION
  Report Type: 
  Country: None (occurrence: None)
  Receive Date: 20111014
  Receipt Date: 20111007
  Transmission Date: 20120403
  Serious: No
  Sender: FDA-Public Use
  Company Number: US-BIOGENIDEC-2011BI032776

PATIENT
  Sex: Male

DRUGS (1)
  1. TYSABRI [Suspect]
     Indication: MULTIPLE SCLEROSIS
     Route: 042
     Dates: start: 20110330, end: 20110525

REACTIONS (5)
  - HYPOAESTHESIA [None]
  - NERVE INJURY [None]
  - MULTIPLE SCLEROSIS [None]
  - VITAMIN B12 DEFICIENCY [None]
  - VITAMIN D DEFICIENCY [None]
